FAERS Safety Report 15806044 (Version 1)
Quarter: 2019Q1

REPORT INFORMATION
  Report Type: Spontaneous
  Country: US (occurrence: US)
  Receive Date: 20190110
  Receipt Date: 20190110
  Transmission Date: 20190417
  Serious: No
  Sender: FDA-Public Use
  Company Number: US-GLENMARK PHARMACEUTICALS-2018GMK038287

PATIENT

DRUGS (1)
  1. ONDANSETRON ORALLY DISINTEGRATING TABLETS [Suspect]
     Active Substance: ONDANSETRON
     Indication: NAUSEA
     Dosage: UNK, (EVERY 6-8 HOURS AS NEEDED)
     Route: 048

REACTIONS (1)
  - Drug ineffective for unapproved indication [Unknown]
